FAERS Safety Report 7008095-6 (Version None)
Quarter: 2010Q3

REPORT INFORMATION
  Report Type: 
  Country: None (occurrence: None)
  Receive Date: 20100922
  Receipt Date: 20100909
  Transmission Date: 20110219
  Serious: Yes (Hospitalization, Other)
  Sender: FDA-Public Use
  Company Number: BR-US-EMD SERONO, INC.-7004733

PATIENT
  Sex: Female

DRUGS (4)
  1. REBIF [Suspect]
     Indication: MULTIPLE SCLEROSIS
     Route: 058
     Dates: start: 20091225
  2. CARDIZEM [Concomitant]
  3. SERTRALINE HYDROCHLORIDE [Concomitant]
  4. IBUPROFEN [Concomitant]

REACTIONS (12)
  - ARTHRALGIA [None]
  - BACK PAIN [None]
  - CARDIAC DISORDER [None]
  - CARDIAC ENZYMES INCREASED [None]
  - CHEST PAIN [None]
  - CONGENITAL ECTOPIC PANCREAS [None]
  - HEADACHE [None]
  - HERPES ZOSTER [None]
  - INFREQUENT BOWEL MOVEMENTS [None]
  - NEURALGIA [None]
  - NEUROPATHY PERIPHERAL [None]
  - PAIN [None]
